FAERS Safety Report 5719430-0 (Version None)
Quarter: 2008Q2

REPORT INFORMATION
  Report Type: 
  Country: None (occurrence: None)
  Receive Date: 20080428
  Receipt Date: 20080418
  Transmission Date: 20081010
  Serious: Yes (Other)
  Sender: FDA-Public Use
  Company Number: PHHY2008BR06299

PATIENT
  Age: 72 Year
  Sex: Female
  Weight: 90 kg

DRUGS (6)
  1. CRESTOR [Concomitant]
     Dosage: 10 MG, QD
     Route: 048
  2. CARVEDILOL [Concomitant]
     Dosage: 12.5 MG, BID
     Route: 048
  3. ALLOPURINOL [Concomitant]
     Dosage: 100 G, TID
     Route: 048
  4. METFORMIN HCL [Concomitant]
     Dosage: 850 MG, UNK
     Route: 048
  5. DIOVAN [Suspect]
     Indication: CARDIAC DISORDER
     Dosage: 160 MG, QD
     Dates: start: 20080301
  6. ASPIRIN PREVENT [Concomitant]
     Dosage: 100 MG, QD
     Route: 048

REACTIONS (3)
  - ANXIETY [None]
  - DEPRESSION [None]
  - FEELING ABNORMAL [None]
